FAERS Safety Report 6866647-8 (Version None)
Quarter: 2010Q3

REPORT INFORMATION
  Report Type: 
  Country: None (occurrence: None)
  Receive Date: 20100722
  Receipt Date: 20100707
  Transmission Date: 20110219
  Serious: Yes (Hospitalization)
  Sender: FDA-Public Use
  Company Number: FR-ELI_LILLY_AND_COMPANY-FR201007001978

PATIENT
  Sex: Male
  Weight: 98 kg

DRUGS (8)
  1. PEMETREXED [Suspect]
     Indication: NON-SMALL CELL LUNG CANCER
     Dosage: 500 MG/M2, EVERY 3 WEEKS (ACTUAL DOSE 1105MG)
     Route: 042
     Dates: start: 20100608
  2. CARBOPLATIN [Suspect]
     Indication: NON-SMALL CELL LUNG CANCER
     Dosage: 600 MG (AUC 5), ON DAY ONE OF CYCLE
     Route: 042
     Dates: start: 20100608
  3. DIAMICRON [Concomitant]
     Indication: TYPE 2 DIABETES MELLITUS
     Dosage: 1 D/F, DAILY (1/D)
     Route: 048
     Dates: end: 20100618
  4. OXYCONTIN [Concomitant]
     Indication: PAIN
     Dosage: 10 MG, DAILY (1/D)
     Dates: start: 20100510
  5. IXEL /01054401/ [Concomitant]
     Indication: DEPRESSION
     Dosage: 1 D/F, DAILY (1/D)
     Route: 048
     Dates: start: 20100501
  6. CORDARONE [Concomitant]
     Indication: ATRIAL FIBRILLATION
     Dosage: 1 D/F, DAILY (1/D)
     Route: 048
     Dates: start: 20100501
  7. INNOHEP [Concomitant]
     Indication: ATRIAL FIBRILLATION
     Dosage: 10000 U, DAILY (1/D)
     Route: 058
     Dates: start: 20100501
  8. CARDENSIEL [Concomitant]
     Indication: HYPERTENSION
     Dosage: 1 D/F, DAILY (1/D)
     Route: 048
     Dates: end: 20100618

REACTIONS (3)
  - DEHYDRATION [None]
  - FEBRILE BONE MARROW APLASIA [None]
  - HYPERCREATININAEMIA [None]
